FAERS Safety Report 7310777-3 (Version None)
Quarter: 2011Q1

REPORT INFORMATION
  Report Type: 
  Country: None (occurrence: None)
  Receive Date: 20110224
  Receipt Date: 20110128
  Transmission Date: 20110831
  Serious: No
  Sender: FDA-Public Use
  Company Number: US-B.I. PHARMACEUTICALS,INC./RIDGEFIELD-2011-BP-02880BP

PATIENT
  Sex: Male

DRUGS (17)
  1. PLAVIX [Concomitant]
     Indication: PROPHYLAXIS
     Dosage: 75 MG
     Route: 048
     Dates: start: 20110103
  2. TERAZOSIN [Concomitant]
     Indication: BENIGN PROSTATIC HYPERPLASIA
     Dosage: 10 MG
     Route: 048
  3. MELOXICAM [Concomitant]
     Indication: ARTHRALGIA
     Route: 048
  4. CHLORTHALIDONE [Concomitant]
     Indication: DIURETIC THERAPY
     Dosage: 50 MG
     Route: 048
  5. POTASSIUM CHLORIDE [Concomitant]
     Dosage: 20 MEQ
     Route: 048
  6. CENTRUM SILVER [Concomitant]
     Indication: PROPHYLAXIS
     Route: 048
  7. COREG [Concomitant]
     Indication: HYPERTENSION
     Dosage: 50 MG
     Route: 048
  8. SYNTHROID [Concomitant]
     Indication: HYPOTHYROIDISM
     Dosage: 250 MCG
     Route: 048
  9. VYTORIN [Concomitant]
     Indication: BLOOD CHOLESTEROL INCREASED
     Route: 048
  10. GLYBURIDE AND METFORMIN HYDROCHLORIDE [Concomitant]
     Indication: DIABETES MELLITUS
     Route: 048
  11. LOVAZA [Concomitant]
     Indication: PROPHYLAXIS
     Dosage: 1000 MG
     Route: 048
  12. ASPIRIN [Concomitant]
     Indication: PROPHYLAXIS
     Dosage: 325 MG
     Route: 048
  13. ALTACE [Concomitant]
     Indication: HYPERTENSION
     Dosage: 20 MG
     Route: 048
  14. ALLOPURINOL [Concomitant]
     Indication: GOUT
     Dosage: 500 MG
     Route: 048
  15. PRADAXA [Suspect]
     Indication: ATRIAL FIBRILLATION
     Dosage: 300 MG
     Route: 048
     Dates: start: 20110104
  16. FUROSEMIDE [Concomitant]
     Indication: DIURETIC THERAPY
     Dosage: 40 MG
     Route: 048
  17. PROPOXYPHENE HYDROCHLORIDE [Concomitant]
     Indication: PAIN
     Route: 048

REACTIONS (5)
  - CONTUSION [None]
  - JOINT SWELLING [None]
  - HAEMORRHOIDAL HAEMORRHAGE [None]
  - CONSTIPATION [None]
  - HAEMORRHOIDS [None]
